FAERS Safety Report 6223081-1 (Version None)
Quarter: 2009Q2

REPORT INFORMATION
  Report Type: 
  Country: None (occurrence: None)
  Receive Date: 20090611
  Receipt Date: 20090608
  Transmission Date: 20091009
  Serious: Yes (Death, Hospitalization, Other)
  Sender: FDA-Public Use
  Company Number: FR-ROXANE LABORATORIES, INC.-2009-RO-00561RO

PATIENT
  Age: 25 Year
  Sex: Male

DRUGS (14)
  1. AZATHIOPRINE [Suspect]
     Indication: CROHN'S DISEASE
     Dates: start: 20040101, end: 20070101
  2. CYCLOPHOSPHAMIDE [Suspect]
     Indication: CHEMOTHERAPY
  3. PREDNISONE [Suspect]
     Indication: CHEMOTHERAPY
  4. METHYLPREDNISOLONE [Suspect]
     Indication: LYMPHOHISTIOCYTOSIS
     Route: 042
  5. METHYLPREDNISOLONE [Suspect]
     Route: 042
  6. METHYLPREDNISOLONE [Suspect]
     Route: 042
  7. TOTAL HUMAN IMMUNOGLOBULIN [Suspect]
     Indication: LYMPHOHISTIOCYTOSIS
  8. TOTAL HUMAN IMMUNOGLOBULIN [Suspect]
  9. TOTAL HUMAN IMMUNOGLOBULIN [Suspect]
  10. ACYCLOVIR [Suspect]
     Indication: LYMPHOHISTIOCYTOSIS
     Route: 042
  11. ACYCLOVIR [Suspect]
     Route: 042
  12. DOXORUBICIN HCL [Suspect]
     Indication: CHEMOTHERAPY
  13. VINCRISTINE [Suspect]
     Indication: CHEMOTHERAPY
  14. RITUXIMAB [Suspect]
     Indication: CHEMOTHERAPY

REACTIONS (9)
  - DRUG INEFFECTIVE [None]
  - EPSTEIN-BARR VIRUS INFECTION [None]
  - GASTROINTESTINAL HAEMORRHAGE [None]
  - INFECTIOUS MONONUCLEOSIS [None]
  - LUNG INFILTRATION [None]
  - LYMPHOHISTIOCYTOSIS [None]
  - LYMPHOPROLIFERATIVE DISORDER [None]
  - MULTI-ORGAN FAILURE [None]
  - RESPIRATORY DISTRESS [None]
